FAERS Safety Report 6698414-2 (Version None)
Quarter: 2010Q2

REPORT INFORMATION
  Report Type: 
  Country: None (occurrence: None)
  Receive Date: 20100427
  Receipt Date: 20100416
  Transmission Date: 20101027
  Serious: Yes (Hospitalization, Other)
  Sender: FDA-Public Use
  Company Number: DE-AMGEN-KDC403187

PATIENT
  Sex: Male
  Weight: 98 kg

DRUGS (13)
  1. NEULASTA [Suspect]
     Indication: CHEMOTHERAPY
     Route: 058
     Dates: start: 20100129
  2. RITUXIMAB [Concomitant]
     Route: 042
     Dates: start: 20100101
  3. CYCLOPHOSPHAMIDE [Concomitant]
     Route: 042
     Dates: start: 20100101
  4. ADRIAMYCIN PFS [Concomitant]
     Route: 042
     Dates: start: 20100101
  5. VINCRISTINE [Concomitant]
     Route: 040
     Dates: start: 20100101
  6. PREDNISONE [Concomitant]
     Route: 048
  7. GRANISETRON [Concomitant]
     Route: 042
     Dates: start: 20100101
  8. EUGLUCON [Concomitant]
  9. DILATREND [Concomitant]
  10. ALLOPURINOL [Concomitant]
  11. ASPIRIN [Concomitant]
  12. TAMSULOSIN HCL [Concomitant]
  13. PANTOZOL [Concomitant]

REACTIONS (6)
  - BLOOD SODIUM DECREASED [None]
  - CARDIAC FAILURE [None]
  - CIRRHOSIS ALCOHOLIC [None]
  - DRUG DOSE OMISSION [None]
  - PANCYTOPENIA [None]
  - WHITE BLOOD CELL COUNT DECREASED [None]
